FAERS Safety Report 9618204 (Version 1)
Quarter: 2013Q4

REPORT INFORMATION
  Report Type: Spontaneous
  Country: US (occurrence: US)
  Receive Date: 20131014
  Receipt Date: 20131014
  Transmission Date: 20140711
  Serious: Yes (Hospitalization)
  Sender: FDA-Public Use
  Company Number: US-BIOGENIDEC-2013BI097383

PATIENT
  Age: 61 Year
  Sex: Female

DRUGS (3)
  1. AVONEX [Suspect]
     Indication: MULTIPLE SCLEROSIS
     Route: 030
     Dates: start: 20010409, end: 2003
  2. AVONEX [Suspect]
     Indication: MULTIPLE SCLEROSIS
     Route: 030
     Dates: start: 2003
  3. BENADRYL [Concomitant]
     Indication: INSOMNIA

REACTIONS (18)
  - Cardiomegaly [Not Recovered/Not Resolved]
  - Fall [Recovered/Resolved]
  - Heart rate decreased [Not Recovered/Not Resolved]
  - Hallucination [Recovered/Resolved]
  - Oesophageal pain [Recovered/Resolved]
  - Pharyngitis [Recovered/Resolved]
  - Urinary tract infection [Recovered/Resolved]
  - General symptom [Recovered/Resolved]
  - Fungal infection [Recovered/Resolved]
  - Heart rate irregular [Not Recovered/Not Resolved]
  - Dyspnoea [Recovered/Resolved]
  - Dacryostenosis acquired [Recovered/Resolved]
  - Eye irritation [Recovered/Resolved]
  - Asthenia [Not Recovered/Not Resolved]
  - Multiple sclerosis relapse [Not Recovered/Not Resolved]
  - Headache [Recovered/Resolved]
  - Injection site pain [Recovered/Resolved]
  - Insomnia [Recovered/Resolved]
